FAERS Safety Report 9918328 (Version 2)
Quarter: 2014Q1

REPORT INFORMATION
  Report Type: Spontaneous
  Country: BR (occurrence: BR)
  Receive Date: 20140224
  Receipt Date: 20140305
  Transmission Date: 20141002
  Serious: Yes (Death, Other)
  Sender: FDA-Public Use
  Company Number: BR-BIOGENIDEC-2014BI016374

PATIENT
  Age: 42 Year
  Sex: Female

DRUGS (1)
  1. TYSABRI [Suspect]
     Indication: MULTIPLE SCLEROSIS
     Route: 042
     Dates: start: 20120210, end: 201310

REACTIONS (7)
  - Intracranial aneurysm [Fatal]
  - Cardio-respiratory arrest [Fatal]
  - Grand mal convulsion [Unknown]
  - Pulmonary oedema [Unknown]
  - Hypertension [Unknown]
  - Head injury [Unknown]
  - Drug ineffective [Unknown]
